FAERS Safety Report 21649029 (Version 1)
Quarter: 2022Q4

REPORT INFORMATION
  Report Type: Report from Study
  Country: US (occurrence: US)
  Receive Date: 20221128
  Receipt Date: 20221128
  Transmission Date: 20230112
  Serious: No
  Sender: FDA-Public Use
  Company Number: US-ABBVIE-4215318

PATIENT
  Sex: Male

DRUGS (1)
  1. IMBRUVICA [Suspect]
     Active Substance: IBRUTINIB
     Indication: Chronic lymphocytic leukaemia
     Dosage: ONSET DATE OF HAIR THINNING WAS 2022?DUE TO PARTIAL DATE COULD NOT CAPTURE
     Route: 048
     Dates: start: 202201

REACTIONS (1)
  - Alopecia [Unknown]
